FAERS Safety Report 20408109 (Version 2)
Quarter: 2022Q2

REPORT INFORMATION
  Report Type: Report from Study
  Country: US (occurrence: US)
  Receive Date: 20220201
  Receipt Date: 20220421
  Transmission Date: 20220721
  Serious: No
  Sender: FDA-Public Use
  Company Number: US-NOVARTISTESTPH-NVSC2022US020927

PATIENT
  Sex: Male

DRUGS (2)
  1. ENTRESTO [Suspect]
     Active Substance: SACUBITRIL\VALSARTAN
     Indication: Product used for unknown indication
     Dosage: 50 MG, BID (SACUBITRIL: 24MG AND VALSARTAN:26MG)
     Route: 048
     Dates: start: 20220108
  2. ENTRESTO [Suspect]
     Active Substance: SACUBITRIL\VALSARTAN
     Dosage: 100 MG, BID (49.51MG)
     Route: 048
     Dates: start: 20220108

REACTIONS (3)
  - COVID-19 [Unknown]
  - Cough [Unknown]
  - Hypotension [Unknown]
